FAERS Safety Report 9290109 (Version 1)
Quarter: 2013Q2

REPORT INFORMATION
  Report Type: Spontaneous
  Country: GB (occurrence: GB)
  Receive Date: 20130515
  Receipt Date: 20130515
  Transmission Date: 20140414
  Serious: Yes (Other)
  Sender: FDA-Public Use
  Company Number: PHFR2013GB002799

PATIENT
  Sex: Male

DRUGS (1)
  1. ZOMETA [Suspect]
     Dosage: 04 MG, EVERY 4 WEEKS
     Dates: start: 201302

REACTIONS (9)
  - Neuropathy peripheral [Unknown]
  - Weight decreased [Unknown]
  - Gamma-glutamyltransferase increased [Unknown]
  - Blood alkaline phosphatase increased [Unknown]
  - Decreased appetite [Unknown]
  - Depressed mood [Unknown]
  - Asthenia [Unknown]
  - Back pain [Unknown]
  - Haemoglobin decreased [Unknown]
